FAERS Safety Report 6003950-8 (Version None)
Quarter: 2008Q4

REPORT INFORMATION
  Report Type: 
  Country: None (occurrence: None)
  Receive Date: 20081216
  Receipt Date: 20081205
  Transmission Date: 20090506
  Serious: Yes (Hospitalization)
  Sender: FDA-Public Use
  Company Number: ES-PFIZER INC-2008152459

PATIENT

DRUGS (3)
  1. ATARAX [Suspect]
     Dosage: 75 MG, 3X/DAY
     Route: 048
     Dates: start: 20080209, end: 20080218
  2. TRIAMCINOLONE ACETONIDE [Suspect]
     Dosage: UNK
     Route: 061
     Dates: start: 20080209, end: 20080218
  3. AUGMENTIN '125' [Suspect]
     Dosage: 3 DF, 3X/DAY
     Route: 048
     Dates: start: 20080209, end: 20080216

REACTIONS (1)
  - RASH [None]
